FAERS Safety Report 4351039-6 (Version None)
Quarter: 2004Q2

REPORT INFORMATION
  Report Type: 
  Country: None (occurrence: None)
  Receive Date: 20040427
  Receipt Date: 20040413
  Transmission Date: 20050107
  Serious: Yes (Hospitalization)
  Sender: FDA-Public Use
  Company Number: 2002CG01115

PATIENT
  Sex: Male

DRUGS (5)
  1. XYLOCAINE [Suspect]
     Dates: start: 20020319
  2. BETADINE [Suspect]
     Dates: start: 20020319
  3. HYALURONATE [Suspect]
     Dates: start: 20020319
  4. BSS [Suspect]
     Dates: start: 20020319
  5. STERDEX [Suspect]
     Dates: start: 20020319

REACTIONS (4)
  - ANAESTHETIC COMPLICATION [None]
  - CATARACT OPERATION COMPLICATION [None]
  - OFF LABEL USE [None]
  - UVEITIS [None]
